FAERS Safety Report 21763180 (Version 1)
Quarter: 2022Q4

REPORT INFORMATION
  Report Type: Spontaneous
  Country: US (occurrence: US)
  Receive Date: 20221221
  Receipt Date: 20221221
  Transmission Date: 20230113
  Serious: No
  Sender: FDA-Public Use
  Company Number: US-ABBVIE-4194273

PATIENT
  Sex: Female

DRUGS (1)
  1. HUMIRA [Suspect]
     Active Substance: ADALIMUMAB
     Indication: Arthritis
     Dosage: 40MG/0.4ML
     Route: 058

REACTIONS (3)
  - Off label use [Unknown]
  - Needle issue [Not Recovered/Not Resolved]
  - Scratch [Unknown]
